FAERS Safety Report 5524131-8 (Version None)
Quarter: 2007Q4

REPORT INFORMATION
  Report Type: 
  Country: None (occurrence: None)
  Receive Date: 20071121
  Receipt Date: 20071116
  Transmission Date: 20080405
  Serious: Yes (Disabling)
  Sender: FDA-Public Use
  Company Number: GB-MERCK-0711GBR00082

PATIENT
  Age: 96 Year
  Sex: Female

DRUGS (4)
  1. FOSAMAX [Suspect]
     Indication: OSTEOPOROSIS
     Route: 048
     Dates: start: 20070829, end: 20071019
  2. CALCIUM CARBONATE AND CHOLECALCIFEROL [Concomitant]
     Indication: OSTEOPOROSIS
     Route: 048
     Dates: start: 20070829, end: 20071019
  3. OXYBUTYNIN [Concomitant]
     Indication: POLLAKIURIA
     Route: 061
     Dates: start: 20070709
  4. TRIMETHOPRIM [Concomitant]
     Indication: URINARY TRACT INFECTION
     Route: 048
     Dates: start: 20070912, end: 20070915

REACTIONS (5)
  - DECREASED APPETITE [None]
  - MOUTH HAEMORRHAGE [None]
  - ORAL MUCOSAL BLISTERING [None]
  - ORAL PAIN [None]
  - SWELLING FACE [None]
